FAERS Safety Report 4349236-9 (Version None)
Quarter: 2004Q2

REPORT INFORMATION
  Report Type: 
  Country: None (occurrence: None)
  Receive Date: 20040428
  Receipt Date: 20011206
  Transmission Date: 20050107
  Serious: Yes (Hospitalization)
  Sender: FDA-Public Use
  Company Number: AU-MERCK-01123427

PATIENT
  Age: 85 Year
  Sex: Female

DRUGS (2)
  1. FOSAMAX [Suspect]
     Indication: OSTEOPOROSIS
     Route: 048
     Dates: start: 20000101
  2. TRANDOLAPRIL [Concomitant]
     Indication: HYPERTENSION
     Route: 065
     Dates: start: 20000101

REACTIONS (4)
  - EMBOLISM [None]
  - EYE HAEMORRHAGE [None]
  - OVERDOSE [None]
  - PHLEBITIS [None]
